FAERS Safety Report 23764549 (Version 4)
Quarter: 2024Q3

REPORT INFORMATION
  Report Type: Spontaneous
  Country: US (occurrence: US)
  Receive Date: 20240420
  Receipt Date: 20240717
  Transmission Date: 20241016
  Serious: No
  Sender: SANOFI AVENTIS
  Company Number: US-SA-SAC20240416000173

PATIENT
  Age: 64 Year
  Sex: Female
  Weight: 68.03 kg

DRUGS (6)
  1. DUPIXENT [Suspect]
     Active Substance: DUPILUMAB
     Indication: Nasal polyps
     Dosage: 300 MG, QOW
     Route: 058
     Dates: start: 20240117
  2. ALLEGRA ALLERGY [Concomitant]
     Active Substance: FEXOFENADINE HYDROCHLORIDE
  3. VITAMINS NOS [Concomitant]
     Active Substance: VITAMINS
  4. OMEPRAZOLE [Concomitant]
     Active Substance: OMEPRAZOLE
  5. VALACYCLOVIR [Concomitant]
     Active Substance: VALACYCLOVIR HYDROCHLORIDE
  6. VITAMIN D3 [Concomitant]
     Active Substance: CHOLECALCIFEROL

REACTIONS (15)
  - Balance disorder [Unknown]
  - Stomatitis [Unknown]
  - Swelling [Unknown]
  - Fatigue [Not Recovered/Not Resolved]
  - Dysphagia [Unknown]
  - Sensitive skin [Not Recovered/Not Resolved]
  - Rhinalgia [Unknown]
  - Oral pain [Not Recovered/Not Resolved]
  - Ear discomfort [Not Recovered/Not Resolved]
  - Oropharyngeal pain [Unknown]
  - Headache [Not Recovered/Not Resolved]
  - Sinus pain [Not Recovered/Not Resolved]
  - Herpes zoster [Unknown]
  - Dizziness [Unknown]
  - Pruritus [Not Recovered/Not Resolved]

NARRATIVE: CASE EVENT DATE: 20240101
